FAERS Safety Report 7417055-2 (Version None)
Quarter: 2011Q2

REPORT INFORMATION
  Report Type: 
  Country: None (occurrence: None)
  Receive Date: 20110415
  Receipt Date: 20091123
  Transmission Date: 20111010
  Serious: Yes (Death, Hospitalization, Other)
  Sender: FDA-Public Use
  Company Number: US-BAYER-201012131NA

PATIENT
  Age: 73 Year
  Sex: Male
  Weight: 73.923 kg

DRUGS (11)
  1. ASPIRIN [Concomitant]
     Dosage: 81 MG, QD
     Route: 048
     Dates: end: 20050129
  2. LIPITOR [Concomitant]
     Dosage: 10 MG, QD
     Route: 048
     Dates: end: 20050129
  3. VERSED [Concomitant]
     Dosage: 5 MG, UNK
     Route: 042
     Dates: start: 20050127, end: 20050127
  4. TRASYLOL [Suspect]
     Indication: CORONARY ARTERY BYPASS
     Dosage: CARDIOPULMONARY BYPASS PUMP
     Route: 042
     Dates: start: 20050127, end: 20050127
  5. VANCOMYCIN [Concomitant]
     Dosage: 1000 MG, UNK
     Route: 042
     Dates: start: 20050127, end: 20050127
  6. HEPARIN [Concomitant]
     Dosage: UNK
     Route: 042
     Dates: start: 20050127, end: 20050127
  7. NEOMYCIN [Concomitant]
     Dosage: 1%/500ML
     Route: 042
     Dates: start: 20050127, end: 20050127
  8. PROTAMINE SULFATE [Concomitant]
     Dosage: 500 MG, UNK
     Route: 042
     Dates: start: 20050127, end: 20050127
  9. TRASYLOL [Suspect]
     Indication: AORTIC VALVE REPLACEMENT
     Dosage: 200CC PUMP PRIME; TRASYLOL 50CC/HOUR IV
     Route: 042
     Dates: start: 20050127, end: 20050127
  10. HYDROCHLOROTHIAZIDE [Concomitant]
     Dosage: 1/2 TAB DAILY
     Route: 048
  11. ETODOLAC [Concomitant]
     Dosage: UNK
     Route: 048
     Dates: start: 20041014

REACTIONS (14)
  - DEATH [None]
  - EMOTIONAL DISORDER [None]
  - PAIN [None]
  - MYOCARDIAL INFARCTION [None]
  - FEAR [None]
  - MULTI-ORGAN FAILURE [None]
  - INJURY [None]
  - RENAL IMPAIRMENT [None]
  - STRESS [None]
  - RENAL INJURY [None]
  - ANXIETY [None]
  - RENAL FAILURE [None]
  - UNEVALUABLE EVENT [None]
  - ANHEDONIA [None]
